FAERS Safety Report 7359254-4 (Version None)
Quarter: 2011Q1

REPORT INFORMATION
  Report Type: 
  Country: None (occurrence: None)
  Receive Date: 20110317
  Receipt Date: 20110310
  Transmission Date: 20110831
  Serious: Yes (Hospitalization)
  Sender: FDA-Public Use
  Company Number: PHHO2011NL03044

PATIENT
  Sex: Female

DRUGS (3)
  1. EVEROLIMUS [Suspect]
     Indication: CERVIX CARCINOMA
     Dosage: 7.5 MG
     Route: 048
     Dates: start: 20110210, end: 20110214
  2. CISPLATIN [Concomitant]
     Indication: CERVIX CARCINOMA
  3. RADIATION [Concomitant]
     Indication: CERVIX CARCINOMA

REACTIONS (7)
  - NAUSEA [None]
  - ABDOMINAL DISCOMFORT [None]
  - DIZZINESS [None]
  - FATIGUE [None]
  - VOMITING [None]
  - MALAISE [None]
  - DIARRHOEA [None]
